FAERS Safety Report 23279561 (Version 2)
Quarter: 2023Q4

REPORT INFORMATION
  Report Type: Spontaneous
  Country: IT (occurrence: IT)
  Receive Date: 20231210
  Receipt Date: 20231220
  Transmission Date: 20240110
  Serious: Yes (Other)
  Sender: FDA-Public Use
  Company Number: IT-MINISAL02-957259

PATIENT
  Age: 50 Year
  Sex: Female
  Weight: 62 kg

DRUGS (3)
  1. LETROZOLE [Suspect]
     Active Substance: LETROZOLE
     Indication: Breast cancer stage IV
     Dosage: 2.5 MILLIGRAM, DAILY
     Route: 048
     Dates: start: 20230630
  2. LEUPROLIDE ACETATE [Suspect]
     Active Substance: LEUPROLIDE ACETATE
     Indication: Breast cancer stage IV
     Dosage: 3.75 MILLIGRAM, EVERY 28 DAYS
     Route: 058
     Dates: start: 20230610
  3. KISQALI [Suspect]
     Active Substance: RIBOCICLIB
     Indication: Breast cancer stage IV
     Dosage: 600 MILLIGRAM, DAILY,1-21, EVERY 28 DAYS
     Route: 048
     Dates: start: 20230630

REACTIONS (4)
  - Neutropenia [Recovered/Resolved]
  - Asthenia [Recovering/Resolving]
  - Arthralgia [Recovering/Resolving]
  - Vulvovaginal inflammation [Recovering/Resolving]

NARRATIVE: CASE EVENT DATE: 20230722
